FAERS Safety Report 23909720 (Version 1)
Quarter: 2024Q2

REPORT INFORMATION
  Report Type: Spontaneous
  Country: TR (occurrence: TR)
  Receive Date: 20240528
  Receipt Date: 20240528
  Transmission Date: 20240716
  Serious: Yes (Other)
  Sender: FDA-Public Use
  Company Number: TR-Accord-426092

PATIENT
  Age: 61 Year
  Sex: Female

DRUGS (5)
  1. TIGECYCLINE [Suspect]
     Active Substance: TIGECYCLINE
     Indication: Pyrexia
     Dosage: LOADING DOSE
     Route: 042
  2. DAPTOMYCIN [Concomitant]
     Active Substance: DAPTOMYCIN
     Indication: Pyrexia
  3. ANIDULAFUNGIN [Concomitant]
     Active Substance: ANIDULAFUNGIN
     Indication: Pyrexia
     Dosage: LOADING DOSE, FOLLOWED BY 100 MG EVERY 12 H
     Route: 042
  4. PREDNISOLONE [Concomitant]
     Active Substance: PREDNISOLONE
     Indication: Immunosuppression
     Dosage: RAPIDLY REDUCED (500 MG ON DAY 1, 250 MG ON DAY 2, 40 MG ON DAY 7, 20 MG AT THE END OF MONTH)
     Route: 042
  5. TIGECYCLINE [Suspect]
     Active Substance: TIGECYCLINE
     Indication: Pyrexia
     Route: 042

REACTIONS (1)
  - Hepatic steatosis [Recovered/Resolved]
